FAERS Safety Report 24888036 (Version 2)
Quarter: 2025Q1

REPORT INFORMATION
  Report Type: Spontaneous
  Country: US (occurrence: US)
  Receive Date: 20250127
  Receipt Date: 20250206
  Transmission Date: 20250408
  Serious: Yes (Hospitalization)
  Sender: MERCK
  Company Number: US-009507513-2501USA007086

PATIENT
  Age: 82 Year
  Sex: Female

DRUGS (6)
  1. KEYTRUDA [Suspect]
     Active Substance: PEMBROLIZUMAB
     Indication: Non-small cell lung cancer
     Dosage: EVERY 6 WEEKS
     Route: 042
     Dates: start: 202401, end: 202412
  2. KEYTRUDA [Suspect]
     Active Substance: PEMBROLIZUMAB
     Indication: Small cell lung cancer
  3. VITAMINS NOS [Concomitant]
     Active Substance: VITAMINS
  4. MIRTAZAPINE [Concomitant]
     Active Substance: MIRTAZAPINE
  5. ZYPREXA [Concomitant]
     Active Substance: OLANZAPINE
  6. ASPIRIN [Concomitant]
     Active Substance: ASPIRIN

REACTIONS (1)
  - Stomatitis [Not Recovered/Not Resolved]

NARRATIVE: CASE EVENT DATE: 20241124
